FAERS Safety Report 17434484 (Version 1)
Quarter: 2020Q1

REPORT INFORMATION
  Report Type: Spontaneous
  Country: FR (occurrence: FR)
  Receive Date: 20200219
  Receipt Date: 20200219
  Transmission Date: 20200409
  Serious: Yes (Other)
  Sender: FDA-Public Use
  Company Number: FR-PFIZER INC-2020071862

PATIENT
  Age: 78 Year
  Sex: Female
  Weight: 90 kg

DRUGS (6)
  1. SPECIAFOLDINE [Suspect]
     Active Substance: FOLIC ACID
     Indication: VITAMIN SUPPLEMENTATION
     Dosage: 15 MG,1 WK
     Route: 048
     Dates: start: 201907, end: 20191218
  2. PREDNISONE. [Suspect]
     Active Substance: PREDNISONE
     Indication: POLYARTHRITIS
     Dosage: 10MG /DAY THEN 1MG /WEEK FROM 09/7 (1 D)
     Route: 048
     Dates: start: 20190522, end: 201910
  3. TRAMADOL. [Concomitant]
     Active Substance: TRAMADOL
     Indication: PAIN
     Dosage: UNK
     Route: 048
     Dates: start: 20191023
  4. OPDIVO [Suspect]
     Active Substance: NIVOLUMAB
     Indication: METASTATIC MALIGNANT MELANOMA
     Dosage: 480 MG,1 M (STRENGTH:10MG/ML)
     Route: 042
     Dates: start: 20190206
  5. IMETH [Suspect]
     Active Substance: METHOTREXATE SODIUM
     Indication: POLYARTHRITIS
     Dosage: 15 MG,1 WK
     Route: 048
     Dates: start: 20190709, end: 20191218
  6. HYDROCORTANCYL [PREDNISOLONE ACETATE] [Concomitant]
     Active Substance: PREDNISOLONE ACETATE
     Indication: ARTHRALGIA
     Dosage: 0.5 DOSAGE FORM,1 D
     Route: 014
     Dates: start: 20190926, end: 20190926

REACTIONS (1)
  - Neoplasm progression [Not Recovered/Not Resolved]

NARRATIVE: CASE EVENT DATE: 20191211
